FAERS Safety Report 23777957 (Version 1)
Quarter: 2024Q2

REPORT INFORMATION
  Report Type: Report from Study
  Country: AR (occurrence: AR)
  Receive Date: 20240424
  Receipt Date: 20240424
  Transmission Date: 20240716
  Serious: Yes (Death)
  Sender: FDA-Public Use
  Company Number: AR-JNJFOC-20240463197

PATIENT
  Age: 40 Year
  Sex: Female
  Weight: 59 kg

DRUGS (1)
  1. EPOPROSTENOL SODIUM [Suspect]
     Active Substance: EPOPROSTENOL SODIUM
     Indication: Pulmonary arterial hypertension
     Route: 042
     Dates: start: 20200612

REACTIONS (1)
  - Death [Fatal]
